FAERS Safety Report 7828964-4 (Version None)
Quarter: 2011Q4

REPORT INFORMATION
  Report Type: 
  Country: None (occurrence: None)
  Receive Date: 20111020
  Receipt Date: 20111012
  Transmission Date: 20120403
  Serious: Yes (Other)
  Sender: FDA-Public Use
  Company Number: SG-BAYER-2011-098290

PATIENT
  Age: 40 Year
  Sex: Female

DRUGS (3)
  1. TRAMADOL HCL [Suspect]
  2. ASPIRIN [Suspect]
  3. ACETAMINOPHEN [Suspect]

REACTIONS (1)
  - EYE SWELLING [None]
